FAERS Safety Report 20628809 (Version 1)
Quarter: 2022Q1

REPORT INFORMATION
  Report Type: Report from Study
  Country: NL (occurrence: NL)
  Receive Date: 20220323
  Receipt Date: 20220323
  Transmission Date: 20220424
  Serious: Yes (Hospitalization, Other)
  Sender: FDA-Public Use
  Company Number: NL-PFIZER INC-202200413304

PATIENT
  Age: 9 Year
  Sex: Male

DRUGS (26)
  1. INFLIXIMAB [Suspect]
     Active Substance: INFLIXIMAB
     Indication: Autoinflammatory disease
     Dosage: 5 MG/KG
     Dates: start: 201204, end: 201207
  2. INFLIXIMAB [Suspect]
     Active Substance: INFLIXIMAB
     Dosage: 10 MG/KG, 2X/WEEK
     Dates: start: 201209, end: 201211
  3. INFLIXIMAB [Suspect]
     Active Substance: INFLIXIMAB
     Dosage: 10 MG/KG, 2X/WEEK
     Dates: start: 201212, end: 201301
  4. INFLIXIMAB [Suspect]
     Active Substance: INFLIXIMAB
     Dosage: UNK
     Dates: start: 201304, end: 201306
  5. RITUXIMAB [Suspect]
     Active Substance: RITUXIMAB
     Indication: Autoinflammatory disease
     Dosage: 375 MG/M2 ( X 2)
     Dates: start: 201205
  6. RITUXIMAB [Suspect]
     Active Substance: RITUXIMAB
     Dosage: 375 MG/M2, ( X 1)
     Dates: start: 201212
  7. SIROLIMUS [Suspect]
     Active Substance: SIROLIMUS
     Indication: Autoinflammatory disease
     Dosage: 1.5 MG, 1X/DAY
     Dates: start: 201402, end: 201405
  8. SIROLIMUS [Suspect]
     Active Substance: SIROLIMUS
     Dosage: UNK
  9. METHOTREXATE [Suspect]
     Active Substance: METHOTREXATE
     Indication: Autoinflammatory disease
     Dosage: 2.5 MG, WEEKLY
     Dates: start: 201212, end: 201301
  10. METHOTREXATE [Suspect]
     Active Substance: METHOTREXATE
     Indication: Prophylaxis against graft versus host disease
  11. HUMAN IMMUNOGLOBULIN G [Suspect]
     Active Substance: HUMAN IMMUNOGLOBULIN G
     Indication: Autoinflammatory disease
     Dosage: 2 G/KG PER 4 WEEK
     Route: 042
     Dates: start: 201204, end: 201207
  12. HUMAN IMMUNOGLOBULIN G [Suspect]
     Active Substance: HUMAN IMMUNOGLOBULIN G
     Dosage: 2 G/KG PER 4 WEEK
     Route: 042
     Dates: start: 201209, end: 201211
  13. HUMAN IMMUNOGLOBULIN G [Suspect]
     Active Substance: HUMAN IMMUNOGLOBULIN G
     Dosage: 2 G/KG PER 4 WEEK
     Route: 042
     Dates: start: 201402, end: 201405
  14. HUMAN IMMUNOGLOBULIN G [Suspect]
     Active Substance: HUMAN IMMUNOGLOBULIN G
     Dosage: 2 G/KG PER 4 WEEK
     Route: 042
     Dates: start: 201401
  15. METHYLPREDNISOLONE [Concomitant]
     Active Substance: METHYLPREDNISOLONE
     Indication: Autoinflammatory disease
     Dosage: 15 MG/KG
     Route: 042
     Dates: start: 201203
  16. METHYLPREDNISOLONE [Concomitant]
     Active Substance: METHYLPREDNISOLONE
     Dosage: 25 MG/KG
     Route: 042
     Dates: start: 201208
  17. THYMOCYTE IMMUNE GLOBULIN NOS [Concomitant]
     Active Substance: THYMOCYTE IMMUNE GLOBULIN NOS
     Indication: Autoinflammatory disease
     Dosage: UNK
     Dates: start: 201302
  18. PREDNISONE [Concomitant]
     Active Substance: PREDNISONE
     Indication: Autoinflammatory disease
     Dosage: 5 MG, 2X/DAY
     Dates: start: 201204, end: 201207
  19. PREDNISONE [Concomitant]
     Active Substance: PREDNISONE
     Dosage: 5 MG, 2X/DAY
     Dates: start: 201209, end: 201211
  20. PREDNISONE [Concomitant]
     Active Substance: PREDNISONE
     Dosage: 1-2 MG/KG
     Dates: start: 201304, end: 201306
  21. PREDNISONE [Concomitant]
     Active Substance: PREDNISONE
     Dosage: PREDNISONE TAPERING
     Dates: start: 201308, end: 201312
  22. PREDNISONE [Concomitant]
     Active Substance: PREDNISONE
     Dosage: 5 MG, 2X/DAY
     Dates: start: 201401
  23. PREDNISONE [Concomitant]
     Active Substance: PREDNISONE
     Dosage: 5 MG, LESS THAN OR EQUAL TO 2X/DAY
     Dates: start: 201402, end: 201405
  24. DESLORATADINE [Concomitant]
     Active Substance: DESLORATADINE
     Indication: Autoinflammatory disease
     Dosage: 2.5 MG, 2X/DAY
     Dates: start: 201401
  25. TREOSULFAN [Concomitant]
     Active Substance: TREOSULFAN
     Indication: Autoinflammatory disease
     Dosage: UNK
     Dates: start: 201302
  26. FLUDARABINE [Concomitant]
     Active Substance: FLUDARABINE PHOSPHATE
     Indication: Autoinflammatory disease
     Dosage: UNK
     Dates: start: 201302

REACTIONS (2)
  - Drug resistance [Unknown]
  - Off label use [Unknown]

NARRATIVE: CASE EVENT DATE: 20120401
